FAERS Safety Report 14775339 (Version 1)
Quarter: 2018Q2

REPORT INFORMATION
  Report Type: Spontaneous
  Country: US (occurrence: US)
  Receive Date: 20180418
  Receipt Date: 20180418
  Transmission Date: 20180711
  Serious: Yes (Death)
  Sender: FDA-Public Use
  Company Number: US-BEH-2018089765

PATIENT
  Age: 35 Year
  Sex: Male
  Weight: 54.42 kg

DRUGS (34)
  1. SUDAFED [Concomitant]
     Active Substance: PSEUDOEPHEDRINE HYDROCHLORIDE
  2. SULFAMETHOXAZOLE [Concomitant]
     Active Substance: SULFAMETHOXAZOLE
  3. FOSAMAX [Concomitant]
     Active Substance: ALENDRONATE SODIUM
  4. ATROVENT [Concomitant]
     Active Substance: IPRATROPIUM BROMIDE
  5. AUGMENTIN [Concomitant]
     Active Substance: AMOXICILLIN\CLAVULANATE POTASSIUM
  6. HIZENTRA [Suspect]
     Active Substance: HUMAN IMMUNOGLOBULIN G
     Dosage: UNK
     Route: 058
  7. SODIUM CHLORIDE. [Concomitant]
     Active Substance: SODIUM CHLORIDE
  8. CALCIFEROL [Concomitant]
     Active Substance: ERGOCALCIFEROL
  9. NORMAL SALINE [Concomitant]
     Active Substance: SODIUM CHLORIDE
  10. HIZENTRA [Suspect]
     Active Substance: HUMAN IMMUNOGLOBULIN G
     Indication: IMMUNODEFICIENCY COMMON VARIABLE
     Dosage: 10 G, QW
     Route: 058
     Dates: start: 20100621, end: 20180411
  11. PREDNISONE. [Concomitant]
     Active Substance: PREDNISONE
  12. VITAMIN E                          /00110501/ [Concomitant]
     Active Substance: TOCOPHEROL
  13. MYCOSTATIN [Concomitant]
     Active Substance: NYSTATIN
  14. SIMETHICONE (DIMETHICONE) [Concomitant]
     Active Substance: DIMETHICONE
  15. HIZENTRA [Suspect]
     Active Substance: HUMAN IMMUNOGLOBULIN G
     Dosage: UNK
     Route: 058
  16. ISOCAL                             /07357001/ [Concomitant]
  17. FOLIC ACID. [Concomitant]
     Active Substance: FOLIC ACID
  18. VITAMIN C [Concomitant]
     Active Substance: ASCORBIC ACID
  19. DILANTIN [Concomitant]
     Active Substance: PHENYTOIN
  20. SULFATE DE GLUCOSAMINE [Concomitant]
  21. JEVITY [Concomitant]
     Active Substance: DIETARY SUPPLEMENT
  22. TYLENOL [Concomitant]
     Active Substance: ACETAMINOPHEN
  23. EPINEPHRINE. [Concomitant]
     Active Substance: EPINEPHRINE
  24. ALBUTEROL                          /00139501/ [Concomitant]
     Active Substance: ALBUTEROL
  25. BACLOFEN. [Concomitant]
     Active Substance: BACLOFEN
  26. THEO-24 [Concomitant]
     Active Substance: THEOPHYLLINE ANHYDROUS
  27. MILK OF MAGNESIA [Concomitant]
     Active Substance: MAGNESIUM HYDROXIDE
  28. SINGULAIR [Concomitant]
     Active Substance: MONTELUKAST SODIUM
  29. FLONASE [Concomitant]
     Active Substance: FLUTICASONE PROPIONATE
  30. DULCOLAX (BISACODYL) [Concomitant]
     Active Substance: BISACODYL
  31. DIPHENHYDRAMINE. [Concomitant]
     Active Substance: DIPHENHYDRAMINE
  32. VITAMIN B12 [Concomitant]
     Active Substance: CYANOCOBALAMIN
  33. CLONIDINE. [Concomitant]
     Active Substance: CLONIDINE
  34. REGLAN [Concomitant]
     Active Substance: METOCLOPRAMIDE HYDROCHLORIDE

REACTIONS (1)
  - Death [Fatal]

NARRATIVE: CASE EVENT DATE: 20180411
